FAERS Safety Report 9454426 (Version 1)
Quarter: 2013Q3

REPORT INFORMATION
  Report Type: Spontaneous
  Country: US (occurrence: US)
  Receive Date: 20130812
  Receipt Date: 20130812
  Transmission Date: 20140515
  Serious: Yes (Other)
  Sender: FDA-Public Use
  Company Number: US-BAYER-2013-096132

PATIENT
  Age: 23 Year
  Sex: Male

DRUGS (4)
  1. NAPROXEN SODIUM ({= 220 MG) [Suspect]
     Dosage: 440 MG, UNK
  2. IBUPROFEN [Suspect]
  3. ACETYLSALICYLIC ACID (} 100 MG) [Suspect]
     Indication: DRUG HYPERSENSITIVITY
     Dosage: 650 MG, ONCE STARTING CHALLENGE DOSE
  4. ACETYLSALICYLIC ACID (} 100 MG) [Suspect]
     Indication: DRUG HYPERSENSITIVITY
     Dosage: 650 MG, ONCE PROVOCATION DOSE

REACTIONS (1)
  - Analgesic asthma syndrome [Recovered/Resolved]
